FAERS Safety Report 22531865 (Version 2)
Quarter: 2023Q2

REPORT INFORMATION
  Report Type: Report from Study
  Country: DE (occurrence: DE)
  Receive Date: 20230607
  Receipt Date: 20230621
  Transmission Date: 20230721
  Serious: Yes (Life-Threatening)
  Sender: FDA-Public Use
  Company Number: DE-ABBVIE-5279417

PATIENT
  Sex: Female

DRUGS (2)
  1. CARBIDOPA\LEVODOPA [Suspect]
     Active Substance: CARBIDOPA\LEVODOPA
     Indication: Parkinson^s disease
     Dosage: MD 5.5ML; CRD 2.2ML/H; CRN 1.2ML/H; ED 1.0ML?THERAPY END DATE 2023
     Route: 050
     Dates: start: 20230418
  2. CARBIDOPA\LEVODOPA [Suspect]
     Active Substance: CARBIDOPA\LEVODOPA
     Dosage: MD: 5.5; CRD: 2.2; EDT: 1.2; CRN: 1.0; EDN: 0.5
     Route: 050
     Dates: start: 20230516, end: 2023

REACTIONS (5)
  - Anaphylactic shock [Recovered/Resolved]
  - Depression [Recovering/Resolving]
  - Stoma site inflammation [Recovering/Resolving]
  - Mobility decreased [Recovered/Resolved]
  - Hypophagia [Unknown]

NARRATIVE: CASE EVENT DATE: 20230101
